FAERS Safety Report 6261081-6 (Version None)
Quarter: 2009Q3

REPORT INFORMATION
  Report Type: 
  Country: None (occurrence: None)
  Receive Date: 20090707
  Receipt Date: 20090622
  Transmission Date: 20100115
  Serious: Yes (Other)
  Sender: FDA-Public Use
  Company Number: 2009S1011230

PATIENT
  Age: 28 Year
  Sex: Female

DRUGS (2)
  1. AMNESTEEM [Suspect]
     Dosage: 40 MG; DAILY; ORAL
     Route: 048
     Dates: start: 20090528, end: 20090622
  2. ORAL CONTRACEPTIVE NOS [Concomitant]

REACTIONS (3)
  - DRUG EXPOSURE DURING PREGNANCY [None]
  - PREGNANCY [None]
  - TREATMENT NONCOMPLIANCE [None]
